FAERS Safety Report 12810179 (Version 1)
Quarter: 2016Q4

REPORT INFORMATION
  Report Type: Report from Study
  Country: US (occurrence: US)
  Receive Date: 20161005
  Receipt Date: 20161005
  Transmission Date: 20170207
  Serious: Yes (Hospitalization, Other)
  Sender: FDA-Public Use
  Company Number: US-ROCHE-1210845

PATIENT
  Age: 76 Year
  Sex: Female
  Weight: 63.18 kg

DRUGS (5)
  1. VELIPARIB [Suspect]
     Active Substance: VELIPARIB
     Indication: OVARIAN CANCER
     Dosage: ON DAY 1 TO 21
     Route: 048
     Dates: start: 20121019, end: 20130215
  2. VANCOMYCIN [Suspect]
     Active Substance: VANCOMYCIN
     Indication: URINARY TRACT INFECTION
     Route: 042
  3. PACLITAXEL. [Suspect]
     Active Substance: PACLITAXEL
     Indication: OVARIAN CANCER
     Dosage: OVER 1 HR ON DAY 1,8 AND 12
     Route: 042
     Dates: start: 20121019, end: 20130215
  4. CARBOPLATIN. [Suspect]
     Active Substance: CARBOPLATIN
     Indication: OVARIAN CANCER
     Dosage: AUC 6 OVER 30 MINS ON DAY 1
     Route: 042
     Dates: start: 20121019, end: 20130215
  5. BEVACIZUMAB [Suspect]
     Active Substance: BEVACIZUMAB
     Indication: OVARIAN CANCER
     Dosage: LAST ADMINISTERED DATE-04/FEB/2013, OVER 30 TO 90 MIN ON DAY 1
     Route: 042
     Dates: start: 20121019, end: 20130215

REACTIONS (15)
  - Muscular weakness [Unknown]
  - Hyponatraemia [Unknown]
  - Nausea [Unknown]
  - Anaemia [Unknown]
  - Fatigue [Unknown]
  - Platelet count decreased [Unknown]
  - Blood creatinine increased [Recovered/Resolved]
  - Hypertension [Unknown]
  - Syncope [Unknown]
  - Urinary tract infection [Recovered/Resolved]
  - Oesophagitis [Unknown]
  - Neutrophil count decreased [Unknown]
  - White blood cell count decreased [Unknown]
  - Urinary tract obstruction [Unknown]
  - Vomiting [Unknown]

NARRATIVE: CASE EVENT DATE: 20130215
